FAERS Safety Report 4726175-2 (Version None)
Quarter: 2005Q3

REPORT INFORMATION
  Report Type: 
  Country: None (occurrence: None)
  Receive Date: 20050725
  Receipt Date: 20050719
  Transmission Date: 20060218
  Serious: Yes (Hospitalization, Other)
  Sender: FDA-Public Use
  Company Number: 2005-06-0432

PATIENT
  Age: 72 Year
  Sex: Female
  Weight: 52 kg

DRUGS (3)
  1. TEMODAL [Suspect]
     Indication: ASTROCYTOMA MALIGNANT
     Dosage: SEE IMAGE
     Route: 048
     Dates: start: 20050421, end: 20050426
  2. TEMODAL [Suspect]
     Indication: ASTROCYTOMA MALIGNANT
     Dosage: SEE IMAGE
     Route: 048
     Dates: end: 20050426
  3. RADIATION THERAPY [Concomitant]

REACTIONS (9)
  - ANAEMIA [None]
  - C-REACTIVE PROTEIN INCREASED [None]
  - EOSINOPHIL COUNT DECREASED [None]
  - FALL [None]
  - LEUKOPENIA [None]
  - LYMPHOPENIA [None]
  - PETECHIAE [None]
  - PYREXIA [None]
  - THROMBOCYTOPENIA [None]
